FAERS Safety Report 4398722-4 (Version None)
Quarter: 2004Q3

REPORT INFORMATION
  Report Type: 
  Country: None (occurrence: None)
  Receive Date: 20040715
  Receipt Date: 20040630
  Transmission Date: 20050211
  Serious: Yes (Death)
  Sender: FDA-Public Use
  Company Number: PHBS2004JP08721

PATIENT
  Age: 62 Year
  Sex: Female

DRUGS (3)
  1. CYCLOSPORINE [Suspect]
     Indication: PARANEOPLASTIC SYNDROME
     Route: 065
  2. METHYLPREDNISOLONE [Concomitant]
     Indication: PARANEOPLASTIC SYNDROME
  3. PLASMAPHERESIS [Concomitant]

REACTIONS (6)
  - DISEASE PROGRESSION [None]
  - HYPERCAPNIA [None]
  - OBLITERATIVE BRONCHIOLITIS [None]
  - PARANEOPLASTIC SYNDROME [None]
  - PNEUMONIA ASPERGILLUS [None]
  - PNEUMONIA CYTOMEGALOVIRAL [None]
